FAERS Safety Report 9381419 (Version 3)
Quarter: 2013Q3

REPORT INFORMATION
  Report Type: Report from Study
  Country: US (occurrence: US)
  Receive Date: 20130703
  Receipt Date: 20130917
  Transmission Date: 20140515
  Serious: Yes (Hospitalization)
  Sender: FDA-Public Use
  Company Number: PHEH2013US014100

PATIENT
  Age: 58 Year
  Sex: Female
  Weight: 45.35 kg

DRUGS (24)
  1. GILENYA [Suspect]
     Indication: MULTIPLE SCLEROSIS
     Dosage: 0.5 MG, QD
     Route: 048
     Dates: start: 20110818
  2. NEURONTIN [Suspect]
     Dosage: 1 DF, TID
     Route: 048
  3. LIPITOR [Concomitant]
     Dosage: 300 MG, QD
  4. NORCO [Concomitant]
     Indication: PAIN
     Dosage: 325 MG, Q4H
     Route: 048
  5. BUSPIRONE [Concomitant]
     Dosage: 1 DF, TID
     Route: 048
  6. FOCALIN XR [Concomitant]
     Dosage: 1 DF, QD
     Route: 048
  7. THYROID THERAPY [Concomitant]
  8. SYNTHROID [Concomitant]
     Dosage: 50 UG, QD
     Route: 048
  9. B 12 [Concomitant]
     Dosage: 0.2 ML, QMO
     Route: 030
  10. TIZANIDINE [Concomitant]
     Dosage: 2 MG, TID
     Route: 048
  11. VITAMIN D [Concomitant]
     Dosage: 1000 U, QD
     Route: 048
  12. AMITRIPTYLINE [Concomitant]
     Dosage: 10 MG, BID
     Route: 048
  13. AMITRIPTYLINE [Concomitant]
     Dosage: 75 MG, UNK
     Route: 048
  14. AMITRIPTYLINE [Concomitant]
     Dosage: UNK
  15. CLONAZEPAM [Concomitant]
     Dosage: 0.5 MG, TID
     Route: 048
  16. SOMA [Concomitant]
     Indication: MUSCLE SPASMS
     Dosage: 350 MG, TID
     Route: 048
  17. AMANTADINE [Concomitant]
     Dosage: 1 DF, BID
     Route: 048
  18. TRILEPTAL [Concomitant]
     Dosage: 1 DF, BID
     Route: 048
  19. PROAIR HFA [Concomitant]
     Indication: COUGH
  20. CITALOPRAM [Concomitant]
     Indication: DEPRESSION
     Dosage: 1.5 DF, DAILY
     Route: 048
  21. IBUPROFEN [Concomitant]
     Dosage: 400 MG, UNK
     Route: 048
  22. CLOBETASOL 0.05% [Concomitant]
  23. INFLUENZA VACCINE [Concomitant]
     Dates: start: 20121130
  24. INFLUENZA VACCINE [Concomitant]
     Dosage: UNK
     Dates: start: 20120216

REACTIONS (13)
  - Convulsion [Recovered/Resolved]
  - Hypoaesthesia [Recovered/Resolved]
  - Specific gravity urine decreased [Recovered/Resolved]
  - Red blood cell count decreased [Recovered/Resolved]
  - Haemoglobin decreased [Recovered/Resolved]
  - Haematocrit decreased [Recovered/Resolved]
  - Mean cell volume increased [Recovered/Resolved]
  - Mean cell haemoglobin increased [Recovered/Resolved]
  - Mean platelet volume decreased [Recovered/Resolved]
  - Neutrophil count increased [Recovered/Resolved]
  - White blood cell count decreased [Recovered/Resolved]
  - Lymphocyte count decreased [Recovered/Resolved]
  - Blood pressure systolic increased [Recovered/Resolved]
